FAERS Safety Report 4784166-X (Version None)
Quarter: 2005Q3

REPORT INFORMATION
  Report Type: 
  Country: None (occurrence: None)
  Receive Date: 20050930
  Receipt Date: 20050822
  Transmission Date: 20060218
  Serious: No
  Sender: FDA-Public Use
  Company Number: US-GLAXOSMITHKLINE-A0571232A

PATIENT
  Age: 70 Year
  Sex: Male

DRUGS (3)
  1. FLOVENT [Suspect]
     Indication: ASTHMA
     Dosage: 2PUFF TWICE PER DAY
     Route: 055
     Dates: start: 20010101
  2. THEO-24 [Concomitant]
  3. ALBUTEROL [Concomitant]

REACTIONS (5)
  - DYSPNOEA [None]
  - HYPERHIDROSIS [None]
  - MALAISE [None]
  - NON-CARDIAC CHEST PAIN [None]
  - PHARMACEUTICAL PRODUCT COMPLAINT [None]
